FAERS Safety Report 24527160 (Version 1)
Quarter: 2024Q4

REPORT INFORMATION
  Report Type: Spontaneous
  Country: US (occurrence: US)
  Receive Date: 20241021
  Receipt Date: 20241021
  Transmission Date: 20250115
  Serious: No
  Sender: ROCHE
  Company Number: US-ROCHE-3484475

PATIENT
  Sex: Female

DRUGS (1)
  1. COTELLIC [Suspect]
     Active Substance: COBIMETINIB
     Indication: Histiocytosis
     Dosage: FREQUENCY TEXT:DAILY ON DAY 1-21 OF 28 DAYS CYCLE
     Route: 048
     Dates: start: 202311

REACTIONS (2)
  - Heart rate increased [Unknown]
  - Blood pressure increased [Unknown]
